FAERS Safety Report 15397450 (Version 1)
Quarter: 2018Q3

REPORT INFORMATION
  Report Type: Report from Study
  Country: JP (occurrence: JP)
  Receive Date: 20180918
  Receipt Date: 20180918
  Transmission Date: 20181010
  Serious: Yes (Death)
  Sender: FDA-Public Use
  Company Number: JP-DSJP-DSJ-2018-140343AA

PATIENT

DRUGS (6)
  1. LANIRAPID [Concomitant]
     Active Substance: METILDIGOXIN
     Indication: ATRIAL FIBRILLATION
     Dosage: 0.1MG/DAY
     Route: 048
     Dates: end: 20180511
  2. EDOXABAN [Suspect]
     Active Substance: EDOXABAN TOSYLATE
     Indication: ATRIAL FIBRILLATION
     Dosage: 60 MG, QD
     Route: 048
     Dates: start: 20160801, end: 20180511
  3. OLMETEC [Concomitant]
     Active Substance: OLMESARTAN MEDOXOMIL
     Dosage: 10MG/DAY
     Route: 048
     Dates: end: 20180511
  4. XARELTO [Concomitant]
     Active Substance: RIVAROXABAN
     Dosage: 15MG/DAY
     Route: 048
     Dates: end: 20160731
  5. JANUVIA [Concomitant]
     Active Substance: SITAGLIPTIN PHOSPHATE
     Dosage: 50MG/DAY
     Route: 048
     Dates: end: 20180511
  6. ARTIST [Concomitant]
     Active Substance: CARVEDILOL
     Dosage: 2.5MG/DAY
     Route: 048
     Dates: end: 20180511

REACTIONS (1)
  - Oesophageal varices haemorrhage [Fatal]

NARRATIVE: CASE EVENT DATE: 20180511
